FAERS Safety Report 7494775-5 (Version None)
Quarter: 2011Q2

REPORT INFORMATION
  Report Type: 
  Country: None (occurrence: None)
  Receive Date: 20110520
  Receipt Date: 20110510
  Transmission Date: 20111010
  Serious: Yes (Death)
  Sender: FDA-Public Use
  Company Number: A0787763A

PATIENT
  Age: 51 Year
  Sex: Male
  Weight: 87.3 kg

DRUGS (1)
  1. AVANDIA [Suspect]
     Dosage: 4MG PER DAY
     Route: 048
     Dates: start: 20051025, end: 20061214

REACTIONS (1)
  - MYOCARDIAL INFARCTION [None]
